FAERS Safety Report 5886763-7 (Version None)
Quarter: 2008Q3

REPORT INFORMATION
  Report Type: 
  Country: None (occurrence: None)
  Receive Date: 20080917
  Receipt Date: 20080915
  Transmission Date: 20090109
  Serious: Yes (Other)
  Sender: FDA-Public Use
  Company Number: US-BRISTOL-MYERS SQUIBB COMPANY-14336762

PATIENT
  Age: 47 Year
  Sex: Male

DRUGS (11)
  1. STAVUDINE [Suspect]
     Indication: ANTIRETROVIRAL THERAPY
  2. DIDANOSINE [Suspect]
     Indication: ANTIRETROVIRAL THERAPY
  3. EFAVIRENZ [Suspect]
     Indication: ANTIRETROVIRAL THERAPY
  4. HYDROXYUREA [Suspect]
     Indication: ANTIRETROVIRAL THERAPY
  5. RITONAVIR [Suspect]
     Indication: ANTIRETROVIRAL THERAPY
  6. NELFINAVIR [Suspect]
     Indication: ANTIRETROVIRAL THERAPY
  7. NEVIRAPINE [Suspect]
  8. LOPINAVIR [Suspect]
     Indication: ANTIRETROVIRAL THERAPY
  9. TENOFOVIR [Suspect]
     Indication: ANTIRETROVIRAL THERAPY
  10. AMPRENAVIR [Suspect]
  11. FOSAMPRENAVIR CALCIUM [Suspect]
     Indication: ANTIRETROVIRAL THERAPY

REACTIONS (7)
  - EYELID PTOSIS [None]
  - HEPATIC STEATOSIS [None]
  - HYPERCHOLESTEROLAEMIA [None]
  - LIPODYSTROPHY ACQUIRED [None]
  - NEUROPATHY PERIPHERAL [None]
  - OPHTHALMOPLEGIA [None]
  - THERAPEUTIC RESPONSE DECREASED [None]
